FAERS Safety Report 22376242 (Version 8)
Quarter: 2023Q4

REPORT INFORMATION
  Report Type: Report from Study
  Country: US (occurrence: US)
  Receive Date: 20230527
  Receipt Date: 20231218
  Transmission Date: 20240110
  Serious: No
  Sender: FDA-Public Use
  Company Number: US-002147023-NVSC2023US118610

PATIENT

DRUGS (1)
  1. KESIMPTA [Suspect]
     Active Substance: OFATUMUMAB
     Indication: Relapsing multiple sclerosis
     Dosage: UNK, QMO
     Route: 065

REACTIONS (8)
  - Headache [Recovering/Resolving]
  - Hypoaesthesia [Unknown]
  - Paraesthesia [Unknown]
  - Musculoskeletal disorder [Unknown]
  - Inappropriate schedule of product administration [Unknown]
  - Accidental exposure to product [Unknown]
  - Incorrect dose administered [Unknown]
  - Wrong technique in device usage process [Unknown]
